FAERS Safety Report 5212913-1 (Version None)
Quarter: 2007Q1

REPORT INFORMATION
  Report Type: 
  Country: None (occurrence: None)
  Receive Date: 20070119
  Receipt Date: 20070109
  Transmission Date: 20070707
  Serious: Yes (Hospitalization, Other)
  Sender: FDA-Public Use
  Company Number: PHBS2007ES00972

PATIENT
  Age: 52 Year
  Sex: Female

DRUGS (20)
  1. CLOZAPINE [Suspect]
  2. CLOMIPRAMINE HCL [Suspect]
     Indication: DEPRESSION
     Dosage: 225 MG/DAY
  3. IMIPRAMINE [Suspect]
     Indication: DEPRESSION
  4. OLANZAPINE [Suspect]
     Dosage: 10 MG/DAY
  5. OLANZAPINE [Suspect]
     Dosage: 15 MG/DAY
  6. OLANZAPINE [Suspect]
     Dosage: 20 MG/DAY
  7. LORAZEPAM [Suspect]
  8. LAMOTRIGINE [Suspect]
  9. QUETIAPINE FUMARATE [Suspect]
  10. VENLAFAXINE HCL [Suspect]
  11. FLUOXETINE [Suspect]
  12. LITHIUM CARBONATE [Suspect]
  13. LEVOMEPROMAZINE [Suspect]
  14. HALOPERIDOL [Suspect]
  15. ZIPRASIDONE HCL [Suspect]
  16. CLORAZEPATE [Suspect]
     Dosage: 150 MG/DAY
  17. LORMETAZEPAM [Suspect]
     Dosage: 2 MG/DAY
  18. MIRTAZAPINE [Suspect]
     Dosage: 30 MG/DAY
  19. BIPERIDEN HYDROCHLORIDE TAB [Suspect]
     Dosage: 4 MG/DAY
  20. LITHIUM CARBONATE [Suspect]
     Dosage: 600 MG/DAY

REACTIONS (13)
  - ABNORMAL BEHAVIOUR [None]
  - AGITATION [None]
  - AMIMIA [None]
  - ANXIETY [None]
  - BRADYKINESIA [None]
  - DELUSION [None]
  - DEPRESSED MOOD [None]
  - DEPRESSION [None]
  - ELECTROCONVULSIVE THERAPY [None]
  - MUSCLE RIGIDITY [None]
  - PARKINSONISM [None]
  - PHOBIA [None]
  - POSTURE ABNORMAL [None]
